FAERS Safety Report 17893811 (Version 2)
Quarter: 2020Q3

REPORT INFORMATION
  Report Type: Spontaneous
  Country: US (occurrence: US)
  Receive Date: 20200615
  Receipt Date: 20200820
  Transmission Date: 20201103
  Serious: Yes (Hospitalization, Other)
  Sender: FDA-Public Use
  Company Number: US-BEH-2020118485

PATIENT
  Sex: Female

DRUGS (1)
  1. PRIVIGEN [Suspect]
     Active Substance: HUMAN IMMUNOGLOBULIN G
     Indication: HYPOGAMMAGLOBULINAEMIA
     Dosage: 45 GRAM, QMT
     Route: 042
     Dates: start: 20181115

REACTIONS (5)
  - Post procedural infection [Unknown]
  - Therapy interrupted [Unknown]
  - Fall [Unknown]
  - No adverse event [Unknown]
  - Knee arthroplasty [Unknown]
